FAERS Safety Report 14495019 (Version 1)
Quarter: 2018Q1

REPORT INFORMATION
  Report Type: Other
  Country: US (occurrence: US)
  Receive Date: 20180206
  Receipt Date: 20180206
  Transmission Date: 20180509
  Serious: Yes (Hospitalization)
  Sender: FDA-Public Use
  Company Number: US-WALMART-2041507

PATIENT
  Age: 62 Year
  Sex: Male
  Weight: 99.09 kg

DRUGS (2)
  1. EQUATE PEPTIC RELIEF REGULAR STRENGTH ORIGINAL [Suspect]
     Active Substance: BISMUTH SUBSALICYLATE
     Indication: GASTROOESOPHAGEAL REFLUX DISEASE
     Route: 048
     Dates: start: 20171210, end: 20171210
  2. MILK OF MAGNESIA [Concomitant]
     Active Substance: MAGNESIUM HYDROXIDE

REACTIONS (6)
  - Product taste abnormal [None]
  - Abdominal pain upper [Recovered/Resolved]
  - Liquid product physical issue [None]
  - Diarrhoea [Recovered/Resolved]
  - Product container seal issue [None]
  - Suspected product tampering [None]

NARRATIVE: CASE EVENT DATE: 20171210
